FAERS Safety Report 4886828-2 (Version None)
Quarter: 2006Q1

REPORT INFORMATION
  Report Type: 
  Country: None (occurrence: None)
  Receive Date: 20060119
  Receipt Date: 20060119
  Transmission Date: 20060701
  Serious: Yes (Hospitalization)
  Sender: FDA-Public Use
  Company Number: None

PATIENT
  Age: 44 Year
  Sex: Male
  Weight: 77.1115 kg

DRUGS (4)
  1. ERBITUX [Suspect]
     Indication: HYPOPHARYNGEAL CANCER STAGE IV
     Dosage: 250   ONCE/WEEK   IV DRIP
     Route: 041
     Dates: start: 20060104, end: 20060301
  2. CARBOPLATIN [Concomitant]
  3. TAXOL [Concomitant]
  4. XRT [Concomitant]

REACTIONS (3)
  - EXFOLIATIVE RASH [None]
  - RASH MACULO-PAPULAR [None]
  - SKIN NECROSIS [None]
